FAERS Safety Report 9326722 (Version 1)
Quarter: 2013Q2

REPORT INFORMATION
  Report Type: Spontaneous
  Country: US (occurrence: US)
  Receive Date: 20130604
  Receipt Date: 20130604
  Transmission Date: 20140414
  Serious: No
  Sender: FDA-Public Use
  Company Number: US-AMGEN-USASP2013032080

PATIENT
  Age: 55 Year
  Sex: Female

DRUGS (6)
  1. ENBREL [Suspect]
     Indication: RHEUMATOID ARTHRITIS
     Dosage: 25 MG, 2 TIMES/WK
     Dates: start: 20030901, end: 201103
  2. ORENCIA [Concomitant]
     Dosage: UNK
  3. PREDNISONE [Concomitant]
     Dosage: UNK
  4. REMICADE [Concomitant]
     Dosage: UNK
  5. HUMIRA [Concomitant]
     Dosage: UNK
  6. SIMPONI [Concomitant]
     Dosage: UNK

REACTIONS (6)
  - Fatigue [Unknown]
  - Joint stiffness [Not Recovered/Not Resolved]
  - Arthritis [Unknown]
  - Musculoskeletal stiffness [Not Recovered/Not Resolved]
  - Drug hypersensitivity [Recovered/Resolved]
  - Dyspnoea [Recovered/Resolved]
